FAERS Safety Report 20990228 (Version 1)
Quarter: 2022Q2

REPORT INFORMATION
  Report Type: Spontaneous
  Country: US (occurrence: US)
  Receive Date: 20220622
  Receipt Date: 20220622
  Transmission Date: 20220721
  Serious: Yes (Hospitalization)
  Sender: FDA-Public Use
  Company Number: US-NAARI PTE LIMITED-2021NP000091

PATIENT
  Age: 34 Year
  Sex: Female

DRUGS (1)
  1. NORETHINDRONE AND ETHINYL ESTRADIOL [Suspect]
     Active Substance: ETHINYL ESTRADIOL\NORETHINDRONE
     Indication: Contraception
     Dosage: UNK, SHE RECEIVED ETHINYLESTRADIOL/NORETHISTERONE SEVERAL YEARS PRIOR.
     Route: 048

REACTIONS (1)
  - Portal vein thrombosis [Recovered/Resolved]
